FAERS Safety Report 5289653-6 (Version None)
Quarter: 2007Q2

REPORT INFORMATION
  Report Type: 
  Country: None (occurrence: None)
  Receive Date: 20070406
  Receipt Date: 20070328
  Transmission Date: 20071010
  Serious: Yes (Death)
  Sender: FDA-Public Use
  Company Number: JP-MERCK-0703USA04620

PATIENT
  Age: 12 Year
  Sex: Female

DRUGS (14)
  1. DECADRON [Suspect]
     Route: 048
  2. AMIKACINA [Concomitant]
     Route: 042
  3. CYTARABINE [Concomitant]
     Route: 042
  4. METHOTREXATE [Concomitant]
     Route: 065
  5. ONCOVIN [Concomitant]
     Route: 041
  6. ADRIAMYCIN PFS [Concomitant]
     Route: 042
  7. LEUNASE [Concomitant]
     Route: 041
  8. SULFAMETHOXAZOLE AND TRIMETHOPRIM [Concomitant]
     Route: 065
  9. FLORID [Concomitant]
     Route: 048
  10. POLYMYXIN B SULFATE [Concomitant]
     Route: 048
  11. MICONAZOLE [Concomitant]
     Route: 030
  12. CARBENIN [Concomitant]
     Route: 041
  13. ITRACONAZOLE [Concomitant]
     Route: 048
  14. MICAFUNGIN SODIUM [Concomitant]
     Route: 041

REACTIONS (7)
  - ACUTE RESPIRATORY DISTRESS SYNDROME [None]
  - BACTERIAL CULTURE POSITIVE [None]
  - HYPERLIPIDAEMIA [None]
  - LUNG INFILTRATION [None]
  - MULTI-ORGAN FAILURE [None]
  - NEUTROPHIL COUNT DECREASED [None]
  - STREPTOCOCCAL BACTERAEMIA [None]
